FAERS Safety Report 9522490 (Version 1)
Quarter: 2013Q1

REPORT INFORMATION
  Report Type: Spontaneous
  Country: US (occurrence: None)
  Receive Date: 20130305
  Receipt Date: 20130305
  Transmission Date: 20140127
  Serious: Yes (Hospitalization)
  Sender: FDA-Public Use
  Company Number: 163-21880-12063848

PATIENT
  Sex: Male

DRUGS (28)
  1. REVLIMID [Suspect]
     Dosage: 10 MG, 1 IN 1 D, PO
     Route: 048
     Dates: start: 20110203
  2. ALBUTEROL (SALBUTAMOL) [Concomitant]
  3. ALLOPURINOL (ALLOPURINOL) (TABLETS) [Concomitant]
  4. AMLODIPINE (AMLODIPINE) [Concomitant]
  5. AMLODIPINE (AMLODIPINE) [Concomitant]
  6. ARTIFICIAL TEARS (ARTIFICIAL TEARS) (DROPS) [Concomitant]
  7. ASMANEX [Concomitant]
  8. ASPIRIN EC (ACETYLSALICYLIC ACID) [Concomitant]
  9. BECONASE AQ (BECLOMETASONEDIPROPIONATE) (SUSPENSION) [Concomitant]
  10. BIAXIN (CLARITHROMYCIN) [Concomitant]
  11. CETIRIZINE (CETIRIZINE) (TABLETS) [Concomitant]
  12. COD LIVER OIL (COD-LIVER OIL) [Concomitant]
  13. CORTISONE (CORTISONE) (CREAM) [Concomitant]
  14. DECADRON (DEXAMETHASONE) [Concomitant]
  15. FINASTERIDE (FINASTERIDE) [Concomitant]
  16. FISH OIL (FISH OIL) (CAPSULES) [Concomitant]
  17. FLEXERIL (CYCLOBENZAPRINE HYDROCHLORIDE) (TABLETS) [Concomitant]
  18. FLUTICASONE (FLUTICASONE) [Concomitant]
  19. GUAIFENESIN DM (TUSSIN DM) (LIQUID) [Concomitant]
  20. HCTZ / TRIAMT (DYAZIDE) [Concomitant]
  21. LOSARTAN POTASSIUM (LOSARTAN POTASSIUM) [Concomitant]
  22. HCTZ /TRIAMT (DYAZIDE) [Concomitant]
  23. LOSARTAN POTASSIUM (LOSARTAN POTASSIUM) [Concomitant]
  24. MOMETASONE (MOMETASONE) (SOLUTION) [Concomitant]
  25. OMEPRAZOLE (OMEPRAZOLE) [Concomitant]
  26. POTASSIUM (POTASSIUM) [Concomitant]
  27. PREDNISONE (PREDNISONE) (TABLETS) [Concomitant]
  28. RANITIDINE [Suspect]

REACTIONS (1)
  - Pneumonia [None]
